FAERS Safety Report 8436160-5 (Version None)
Quarter: 2012Q2

REPORT INFORMATION
  Report Type: 
  Country: None (occurrence: None)
  Receive Date: 20120614
  Receipt Date: 20120607
  Transmission Date: 20120825
  Serious: Yes (Hospitalization, Other)
  Sender: FDA-Public Use
  Company Number: JP-PFIZER INC-2012113656

PATIENT
  Age: 67 Year
  Sex: Female
  Weight: 34 kg

DRUGS (3)
  1. VOLTAREN [Concomitant]
     Dosage: 25 MG, AS NEEDED
     Route: 054
     Dates: start: 20120507, end: 20120508
  2. VOLTAREN [Concomitant]
     Indication: PAIN
     Dosage: 50 MG, AS NEEDED
     Route: 054
     Dates: start: 20120505, end: 20120506
  3. ZITHROMAX [Suspect]
     Dosage: 500 MG, 1X/DAY
     Route: 041
     Dates: start: 20120505, end: 20120509

REACTIONS (3)
  - MALAISE [None]
  - PYREXIA [None]
  - PANCYTOPENIA [None]
